FAERS Safety Report 13495663 (Version 1)
Quarter: 2017Q2

REPORT INFORMATION
  Report Type: Spontaneous
  Country: US (occurrence: US)
  Receive Date: 20170428
  Receipt Date: 20170428
  Transmission Date: 20170830
  Serious: Yes (Other)
  Sender: FDA-Public Use
  Company Number: US-LPDUSPRD-20170487

PATIENT
  Age: 74 Year
  Sex: Male
  Weight: 76 kg

DRUGS (8)
  1. ROCURONIUM [Suspect]
     Active Substance: ROCURONIUM BROMIDE
     Dosage: 50MG
     Route: 042
  2. PROPOFOL. [Suspect]
     Active Substance: PROPOFOL
     Dosage: UP TO 200MG IN DIVIDED DOSES
     Route: 042
  3. METOPROLOL. [Suspect]
     Active Substance: METOPROLOL
     Dosage: DOSE UNKNOWN
     Route: 048
  4. SUCCINYLCHOLINE [Suspect]
     Active Substance: SUCCINYLCHOLINE
     Dosage: 120MG
     Route: 042
  5. LIDOCAINE HCL INJECTION, USP (0517-9402-01) [Suspect]
     Active Substance: LIDOCAINE HYDROCHLORIDE
     Dosage: 60MG
     Route: 042
  6. FENTANYL. [Suspect]
     Active Substance: FENTANYL
     Dosage: 100 MCG
     Route: 042
  7. ETOMIDATE INJECTION (0780-10) [Suspect]
     Active Substance: ETOMIDATE
     Dosage: 16MG
     Route: 042
  8. ZICONOTIDE [Suspect]
     Active Substance: ZICONOTIDE
     Dosage: 0.6 MICROGRAMS PER HOUR
     Route: 037

REACTIONS (2)
  - Hypotension [Unknown]
  - Vasoplegia syndrome [Unknown]
